FAERS Safety Report 6040551-X (Version None)
Quarter: 2009Q1

REPORT INFORMATION
  Report Type: 
  Country: None (occurrence: None)
  Receive Date: 20090116
  Receipt Date: 20080404
  Transmission Date: 20090719
  Serious: No
  Sender: FDA-Public Use
  Company Number: US-BRISTOL-MYERS SQUIBB COMPANY-14138127

PATIENT
  Age: 52 Year
  Sex: Male
  Weight: 96 kg

DRUGS (7)
  1. ABILIFY [Suspect]
     Indication: BIPOLAR DISORDER
  2. ABILIFY [Suspect]
     Indication: ATTENTION DEFICIT/HYPERACTIVITY DISORDER
  3. TEGRETOL [Concomitant]
  4. WELLBUTRIN XL [Concomitant]
  5. ADDERALL XR 20 [Concomitant]
  6. SIMVASTATIN [Concomitant]
  7. GABAPENTIN [Concomitant]

REACTIONS (1)
  - TARDIVE DYSKINESIA [None]
